FAERS Safety Report 13293744 (Version 1)
Quarter: 2017Q1

REPORT INFORMATION
  Report Type: Report from Study
  Country: CA (occurrence: CA)
  Receive Date: 20170303
  Receipt Date: 20170303
  Transmission Date: 20170428
  Serious: Yes (Hospitalization)
  Sender: FDA-Public Use
  Company Number: CA-HLSUS-2017-CA-000200

PATIENT
  Sex: Male

DRUGS (1)
  1. CLOZARIL [Suspect]
     Active Substance: CLOZAPINE
     Route: 048
     Dates: start: 20060818

REACTIONS (5)
  - Tachycardia [Unknown]
  - Cardiac disorder [Unknown]
  - Tumour invasion [Unknown]
  - Pneumonia [None]
  - Lung neoplasm malignant [None]
